FAERS Safety Report 7578668-0 (Version None)
Quarter: 2011Q2

REPORT INFORMATION
  Report Type: 
  Country: None (occurrence: None)
  Receive Date: 20110628
  Receipt Date: 20110624
  Transmission Date: 20111010
  Serious: Yes (Death, Other)
  Sender: FDA-Public Use
  Company Number: PHHY2009DE68653

PATIENT
  Sex: Female
  Weight: 70 kg

DRUGS (7)
  1. SANDOSTATIN LAR [Suspect]
     Indication: PANCREATIC NEUROENDOCRINE TUMOUR
     Dosage: 30 MG, UNK
     Route: 030
     Dates: start: 20080101
  2. METAMIZOLE [Concomitant]
  3. KALITRANS [Concomitant]
     Dosage: 3 UNK, QD2SDO
  4. LOPEDIUM [Concomitant]
     Dosage: 1 DF, QD
  5. PANGROL [Concomitant]
     Dosage: 3 UNK, BID
  6. LOPERAMIDE [Concomitant]
     Dosage: 2 UNK, QD
  7. BERLINSULIN H NORMAL [Concomitant]
     Dosage: 10-6-4 I.U.

REACTIONS (5)
  - DEATH [None]
  - BACK PAIN [None]
  - VAGINAL HAEMORRHAGE [None]
  - BLOOD GLUCOSE DECREASED [None]
  - DIARRHOEA [None]
